FAERS Safety Report 7569500-X (Version None)
Quarter: 2011Q2

REPORT INFORMATION
  Report Type: 
  Country: None (occurrence: None)
  Receive Date: 20110624
  Receipt Date: 20110613
  Transmission Date: 20111010
  Serious: No
  Sender: FDA-Public Use
  Company Number: US-BIOGENIDEC-2011BI021703

PATIENT
  Age: 64 Year
  Sex: Female

DRUGS (2)
  1. AVONEX [Suspect]
     Indication: MULTIPLE SCLEROSIS
     Route: 030
     Dates: start: 20060201
  2. AVONEX [Suspect]
     Route: 030
     Dates: start: 19980801, end: 20011207

REACTIONS (4)
  - MULTIPLE SCLEROSIS RELAPSE [None]
  - PAIN [None]
  - TREMOR [None]
  - ECZEMA [None]
